FAERS Safety Report 4724870-2 (Version None)
Quarter: 2005Q3

REPORT INFORMATION
  Report Type: 
  Country: None (occurrence: None)
  Receive Date: 20050726
  Receipt Date: 20050719
  Transmission Date: 20060218
  Serious: Yes (Hospitalization, Other)
  Sender: FDA-Public Use
  Company Number: PHRM2005FR02114

PATIENT
  Age: 71 Year
  Sex: Male

DRUGS (6)
  1. MODOPAR [Suspect]
     Dosage: 25/100 MG X 3/DAY
     Route: 048
  2. MODOPAR [Suspect]
     Dosage: 25/100 MG X 3/DAY
     Route: 048
  3. PARLODEL [Suspect]
     Dosage: 60 MG/DAY
     Route: 048
  4. URBANYL [Suspect]
     Dosage: 10 MG/DAY
     Route: 048
  5. ACETAMINOPHEN [Suspect]
     Dosage: 4 G/DAY
     Route: 048
  6. COMTAN [Suspect]
     Dosage: 600 MG/DAY
     Route: 048

REACTIONS (4)
  - ANXIETY [None]
  - DYSPNOEA [None]
  - LEUKAEMIA [None]
  - SINUS ARRHYTHMIA [None]
